FAERS Safety Report 13308905 (Version 1)
Quarter: 2017Q1

REPORT INFORMATION
  Report Type: Spontaneous
  Country: US (occurrence: US)
  Receive Date: 20170308
  Receipt Date: 20170308
  Transmission Date: 20170428
  Serious: Yes (Death)
  Sender: FDA-Public Use
  Company Number: None

PATIENT
  Age: 60 Year
  Sex: Male
  Weight: 145.8 kg

DRUGS (12)
  1. TIOTROPIUM [Concomitant]
     Active Substance: TIOTROPIUM
  2. FORMOTER [Concomitant]
  3. ACETAMINOPHEN. [Concomitant]
     Active Substance: ACETAMINOPHEN
  4. FUROSEMIDE. [Suspect]
     Active Substance: FUROSEMIDE
  5. ADCIRCA [Suspect]
     Active Substance: TADALAFIL
     Indication: PRODUCT USED FOR UNKNOWN INDICATION
     Route: 048
     Dates: start: 20160511, end: 20170220
  6. OXYCODONE HYDROCHLORIDE. [Concomitant]
     Active Substance: OXYCODONE HYDROCHLORIDE
  7. NICOTINE 2MG GUM [Concomitant]
  8. ASPIRIN/ENTERIC COATED [Concomitant]
  9. BUDESONIDE. [Concomitant]
     Active Substance: BUDESONIDE
  10. ATORVASTACIN CALCIUM [Concomitant]
  11. ALBUTEROL. [Concomitant]
     Active Substance: ALBUTEROL
  12. IBUPROFEN. [Concomitant]
     Active Substance: IBUPROFEN

REACTIONS (3)
  - Multiple organ dysfunction syndrome [None]
  - Respiratory failure [None]
  - Influenza [None]

NARRATIVE: CASE EVENT DATE: 20170303
